FAERS Safety Report 5758820-7 (Version None)
Quarter: 2008Q2

REPORT INFORMATION
  Report Type: 
  Country: None (occurrence: None)
  Receive Date: 20080604
  Receipt Date: 20080603
  Transmission Date: 20081010
  Serious: Yes (Death, Hospitalization, Other)
  Sender: FDA-Public Use
  Company Number: FR-BRISTOL-MYERS SQUIBB COMPANY-14213789

PATIENT
  Age: 47 Year
  Sex: Female

DRUGS (2)
  1. TAXOL [Suspect]
     Indication: BREAST CANCER
     Dosage: 70MG/M2.26NOV07:152.10MG;11DEC07,24DEC07,05FEB08:118.30MG;08JAN08,21JAN08,29JAN08:117.60MG
     Route: 042
     Dates: start: 20071126, end: 20071126
  2. AVASTIN [Suspect]
     Indication: BREAST CANCER
     Dosage: STRENGTH:25MG/ML.26NOV07 + 11DEC07:600MG
     Route: 042
     Dates: start: 20071126, end: 20071126

REACTIONS (4)
  - EPISTAXIS [None]
  - HAEMORRHAGE [None]
  - THROMBOCYTOPENIA [None]
  - UPPER GASTROINTESTINAL HAEMORRHAGE [None]
